FAERS Safety Report 10597158 (Version 3)
Quarter: 2016Q2

REPORT INFORMATION
  Report Type: Report from Study
  Country: GB (occurrence: GB)
  Receive Date: 20141121
  Receipt Date: 20160407
  Transmission Date: 20160815
  Serious: Yes (Death, Hospitalization)
  Sender: FDA-Public Use
  Company Number: GB-AMGEN-GBRNI2014089805

PATIENT
  Age: 23 Year
  Sex: Male
  Weight: 93 kg

DRUGS (1)
  1. ETANERCEPT [Suspect]
     Active Substance: ETANERCEPT
     Indication: JUVENILE IDIOPATHIC ARTHRITIS
     Dosage: 25 MG, 2X/WEEK
     Route: 065
     Dates: start: 20070821

REACTIONS (5)
  - Mitral valve disease [Fatal]
  - Furuncle [Fatal]
  - Epidermal naevus [Fatal]
  - Congenital anomaly [Fatal]
  - Endocarditis [Fatal]

NARRATIVE: CASE EVENT DATE: 20111110
